FAERS Safety Report 10674630 (Version 1)
Quarter: 2014Q4

REPORT INFORMATION
  Report Type: Spontaneous
  Country: IT (occurrence: IT)
  Receive Date: 20141224
  Receipt Date: 20141224
  Transmission Date: 20150529
  Serious: Yes (Other)
  Sender: FDA-Public Use
  Company Number: IT-WATSON-2014-27534

PATIENT
  Age: 41 Year
  Sex: Male

DRUGS (2)
  1. DISULFIRAM (UNKNOWN) [Suspect]
     Active Substance: DISULFIRAM
     Indication: ABSTAINS FROM ALCOHOL
     Dosage: 200 MG, DAILY
     Route: 048
     Dates: start: 20140114, end: 20140422
  2. ACAMPROSATE [Suspect]
     Active Substance: ACAMPROSATE
     Indication: ABSTAINS FROM ALCOHOL
     Dosage: 1998 MG, DAILY
     Route: 048
     Dates: start: 20140107, end: 20140917

REACTIONS (1)
  - Aspartate aminotransferase increased [Recovered/Resolved]

NARRATIVE: CASE EVENT DATE: 20140415
